FAERS Safety Report 7472888-1 (Version None)
Quarter: 2011Q2

REPORT INFORMATION
  Report Type: 
  Country: None (occurrence: None)
  Receive Date: 20110503
  Receipt Date: 20110202
  Transmission Date: 20111010
  Serious: Yes (Other)
  Sender: FDA-Public Use
  Company Number: DSA_03343_2011

PATIENT
  Age: 33 Year
  Sex: Female

DRUGS (5)
  1. EPIQUIN MICRO [Suspect]
  2. LISINOPRIL [Concomitant]
  3. MULTI-VITAMINS [Concomitant]
  4. EPIQUIN MICRO [Suspect]
     Indication: PRODUCT USED FOR UNKNOWN INDICATION
     Dosage: (DF TOPICAL), (DF TOPICAL)
     Route: 061
     Dates: start: 20110108, end: 20110111
  5. EPIQUIN MICRO [Suspect]
     Indication: PRODUCT USED FOR UNKNOWN INDICATION
     Dosage: (DF TOPICAL), (DF TOPICAL)
     Route: 061
     Dates: start: 20110114, end: 20110114

REACTIONS (7)
  - NAUSEA [None]
  - CHEST PAIN [None]
  - MUSCULOSKELETAL STIFFNESS [None]
  - PRURITUS [None]
  - DYSPNOEA [None]
  - ASTHMA [None]
  - EAR PAIN [None]
